FAERS Safety Report 4442746-5 (Version None)
Quarter: 2004Q3

REPORT INFORMATION
  Report Type: 
  Country: None (occurrence: None)
  Receive Date: 20040903
  Receipt Date: 20040713
  Transmission Date: 20050211
  Serious: Yes (Other)
  Sender: FDA-Public Use
  Company Number: 2004UW12419

PATIENT
  Age: 78 Year
  Sex: Female
  Weight: 66.2252 kg

DRUGS (5)
  1. CRESTOR [Suspect]
     Indication: HYPERLIPIDAEMIA
     Dosage: 10 MG QD PO
     Route: 048
     Dates: start: 20040609, end: 20040601
  2. ASPIRIN [Concomitant]
  3. PRILOSEC [Concomitant]
  4. NITRODUR II [Concomitant]
  5. PROCARDIA [Concomitant]

REACTIONS (4)
  - ABASIA [None]
  - BACK PAIN [None]
  - MYOPATHY [None]
  - PAIN [None]
